FAERS Safety Report 4411911-5 (Version None)
Quarter: 2004Q3

REPORT INFORMATION
  Report Type: 
  Country: None (occurrence: None)
  Receive Date: 20040730
  Receipt Date: 20040202
  Transmission Date: 20050211
  Serious: No
  Sender: FDA-Public Use
  Company Number: US-GLAXOSMITHKLINE-A0496035A

PATIENT
  Age: 77 Year
  Sex: Female

DRUGS (7)
  1. ZANTAC [Suspect]
     Dosage: 150MG TWICE PER DAY
     Route: 048
  2. GLUCOPHAGE [Concomitant]
  3. GLUCOTROL XL [Concomitant]
  4. ZESTRIL [Concomitant]
  5. CELEBREX [Concomitant]
  6. ASPIRIN [Concomitant]
  7. CENTRUM SILVER VITAMINS [Concomitant]

REACTIONS (1)
  - ALOPECIA [None]
